FAERS Safety Report 17989904 (Version 2)
Quarter: 2020Q3

REPORT INFORMATION
  Report Type: Spontaneous
  Country: US (occurrence: US)
  Receive Date: 20200707
  Receipt Date: 20200819
  Transmission Date: 20201103
  Serious: Yes (Disabling)
  Sender: FDA-Public Use
  Company Number: US-AMGEN-USASP2020107519

PATIENT
  Age: 64 Year
  Sex: Female
  Weight: 113.38 kg

DRUGS (2)
  1. REPATHA [Suspect]
     Active Substance: EVOLOCUMAB
     Indication: BLOOD CHOLESTEROL INCREASED
     Dosage: 140 MILLIGRAM, Q2WK
     Route: 065
     Dates: start: 20190213
  2. LIPITOR [Concomitant]
     Active Substance: ATORVASTATIN CALCIUM
     Dosage: UNK

REACTIONS (6)
  - Drug ineffective [Unknown]
  - Accidental exposure to product [Unknown]
  - Device deployment issue [Unknown]
  - Wrong technique in product usage process [Unknown]
  - Gait disturbance [Unknown]
  - Fear of injection [Unknown]

NARRATIVE: CASE EVENT DATE: 20200702
